FAERS Safety Report 4352111-7 (Version None)
Quarter: 2004Q2

REPORT INFORMATION
  Report Type: 
  Country: None (occurrence: None)
  Receive Date: 20040428
  Receipt Date: 20040416
  Transmission Date: 20050107
  Serious: Yes (Hospitalization)
  Sender: FDA-Public Use
  Company Number: 163-20785-04030134

PATIENT
  Age: 57 Year
  Sex: Male

DRUGS (8)
  1. THALOMID [Suspect]
     Indication: MALIGNANT MELANOMA
     Dosage: 200 MG, DAI LY, ORAL
     Route: 048
     Dates: start: 20030901, end: 20040303
  2. TEMODAR [Concomitant]
  3. DILANTIN [Concomitant]
  4. PRINIVIL [Concomitant]
  5. LASIX [Concomitant]
  6. PRILOSEC [Concomitant]
  7. DECADRON [Concomitant]
  8. ACTONEL [Concomitant]

REACTIONS (1)
  - PNEUMOTHORAX [None]
